FAERS Safety Report 21289994 (Version 1)
Quarter: 2022Q3

REPORT INFORMATION
  Report Type: Spontaneous
  Country: US (occurrence: None)
  Receive Date: 20220825
  Receipt Date: 20220825
  Transmission Date: 20221027
  Serious: Yes (Other)
  Sender: FDA-Public Use
  Company Number: None

PATIENT
  Age: 29 Year
  Sex: Female

DRUGS (1)
  1. TYLENOL [Suspect]
     Active Substance: ACETAMINOPHEN
     Indication: Migraine
     Dosage: FREQUENCY : AS NEEDED;?
     Route: 048

REACTIONS (8)
  - Maternal exposure during pregnancy [None]
  - Foetal exposure during pregnancy [None]
  - Drug ineffective [None]
  - Nasopharyngitis [None]
  - Cough [None]
  - Antibiotic therapy [None]
  - Premature labour [None]
  - Foetal heart rate deceleration abnormality [None]

NARRATIVE: CASE EVENT DATE: 20220722
